FAERS Safety Report 8817688 (Version 1)
Quarter: 2012Q4

REPORT INFORMATION
  Report Type: 
  Country: US (occurrence: US)
  Receive Date: 20121001
  Receipt Date: 20121001
  Transmission Date: 20130627
  Serious: No
  Sender: FDA-Public Use
  Company Number: PHEH2012US018928

PATIENT
  Sex: Female

DRUGS (3)
  1. TASIGNA [Suspect]
     Dosage: 400 mg, BID
     Route: 048
     Dates: start: 20120802
  2. ALENDRONATE SODIUM [Concomitant]
     Dosage: 70 mg, once in a week
  3. NIZATIDINE [Concomitant]
     Dosage: 150 mg, BID

REACTIONS (1)
  - Accidental exposure to product [Unknown]
